FAERS Safety Report 9827186 (Version 1)
Quarter: 2014Q1

REPORT INFORMATION
  Report Type: Spontaneous
  Country: US (occurrence: US)
  Receive Date: 20140117
  Receipt Date: 20140117
  Transmission Date: 20141002
  Serious: No
  Sender: FDA-Public Use
  Company Number: US-GLAXOSMITHKLINE-A1045294A

PATIENT
  Age: 61 Year
  Sex: Male

DRUGS (1)
  1. PROMACTA [Suspect]
     Indication: LIVER DISORDER
     Dosage: 25MG PER DAY
     Route: 048
     Dates: start: 201308, end: 201309

REACTIONS (3)
  - Malaise [Unknown]
  - White blood cell count decreased [Unknown]
  - Liver disorder [Unknown]
